FAERS Safety Report 8305563-1 (Version None)
Quarter: 2012Q2

REPORT INFORMATION
  Report Type: 
  Country: None (occurrence: None)
  Receive Date: 20120423
  Receipt Date: 20120412
  Transmission Date: 20120825
  Serious: Yes (Disabling)
  Sender: FDA-Public Use
  Company Number: US-SANOFI-AVENTIS-2012SA025522

PATIENT
  Age: 71 Year
  Sex: Female

DRUGS (8)
  1. VICTOZA [Concomitant]
  2. LANTUS [Suspect]
     Dosage: 40/50
     Route: 058
  3. LANTUS [Suspect]
     Dosage: UNKNOWN AMOUNT IN THE MORNING
     Route: 058
  4. SOLOSTAR [Suspect]
  5. LANTUS [Suspect]
     Dosage: UNKNOWN AMOUNT IN THE MORNING
     Route: 058
  6. LANTUS [Suspect]
     Dosage: 40/50
     Route: 058
  7. NOVOLOG [Concomitant]
  8. SOLOSTAR [Suspect]

REACTIONS (4)
  - CATARACT [None]
  - VISUAL IMPAIRMENT [None]
  - ARTHROPATHY [None]
  - BLOOD GLUCOSE INCREASED [None]
